FAERS Safety Report 4577420-8 (Version None)
Quarter: 2005Q1

REPORT INFORMATION
  Report Type: 
  Country: None (occurrence: None)
  Receive Date: 20050208
  Receipt Date: 20050128
  Transmission Date: 20050727
  Serious: Yes (Death)
  Sender: FDA-Public Use
  Company Number: D01200405351

PATIENT
  Age: 69 Year
  Sex: Male

DRUGS (4)
  1. OXALIPLATIN [Suspect]
     Indication: CHEMOTHERAPY NEUROTOXICITY ATTENUATION
     Dosage: SEE IMAGE
     Route: 042
     Dates: start: 20040615, end: 20040615
  2. FLUOROURACIL [Suspect]
     Dosage: SEE IMAGE
     Route: 042
     Dates: start: 20040615, end: 20040617
  3. SR57746 OR PLACEBO [Suspect]
     Dosage: SEE IMAGE
     Route: 048
     Dates: start: 20031125, end: 20040629
  4. LEUCOVORIN CALCIUM [Suspect]
     Dosage: SEE IMAGE
     Route: 042
     Dates: start: 20040615, end: 20040616

REACTIONS (6)
  - BRONCHOPNEUMONIA [None]
  - GENERAL PHYSICAL HEALTH DETERIORATION [None]
  - METASTASES TO LIVER [None]
  - METASTASES TO LUNG [None]
  - PERITONEAL ADHESIONS [None]
  - PLEURAL FIBROSIS [None]
